FAERS Safety Report 25963883 (Version 1)
Quarter: 2025Q4

REPORT INFORMATION
  Report Type: Report from Study
  Country: CA (occurrence: CA)
  Receive Date: 20251027
  Receipt Date: 20251027
  Transmission Date: 20260118
  Serious: Yes (Hospitalization, Other)
  Sender: ABBVIE
  Company Number: CA-ABBVIE-6512558

PATIENT
  Age: 33 Year
  Sex: Female

DRUGS (4)
  1. SKYRIZI [Suspect]
     Active Substance: RISANKIZUMAB-RZAA
     Indication: Psoriasis
     Dosage: INJECT THE CONTENTS OF 1 PEN 150MG
     Route: 058
     Dates: start: 20230603
  2. BUPROPION [Concomitant]
     Active Substance: BUPROPION
     Indication: Product used for unknown indication
  3. VYVANSE [Concomitant]
     Active Substance: LISDEXAMFETAMINE DIMESYLATE
     Indication: Product used for unknown indication
  4. SERTRALINE [Concomitant]
     Active Substance: SERTRALINE HYDROCHLORIDE
     Indication: Product used for unknown indication

REACTIONS (7)
  - Intentional self-injury [Unknown]
  - Depression [Unknown]
  - Suicidal ideation [Unknown]
  - Depressed mood [Unknown]
  - Suicide attempt [Unknown]
  - Psychotic disorder [Unknown]
  - Skin laceration [Unknown]

NARRATIVE: CASE EVENT DATE: 20250801
